FAERS Safety Report 7679587-1 (Version None)
Quarter: 2011Q3

REPORT INFORMATION
  Report Type: 
  Country: None (occurrence: None)
  Receive Date: 20110812
  Receipt Date: 20110810
  Transmission Date: 20111222
  Serious: Yes (Other)
  Sender: FDA-Public Use
  Company Number: ES-AMGEN-ESPSP2011040439

PATIENT

DRUGS (1)
  1. NPLATE [Suspect]
     Indication: AUTOIMMUNE THROMBOCYTOPENIA
     Dosage: UNK

REACTIONS (1)
  - MONOCYTOSIS [None]
